FAERS Safety Report 18067571 (Version 1)
Quarter: 2020Q3

REPORT INFORMATION
  Report Type: Spontaneous
  Country: CN (occurrence: CN)
  Receive Date: 20200724
  Receipt Date: 20200724
  Transmission Date: 20201103
  Serious: Yes (Disabling, Other)
  Sender: FDA-Public Use
  Company Number: CN-ASTRAZENECA-2020SE92260

PATIENT
  Age: 26649 Day
  Sex: Male
  Weight: 61 kg

DRUGS (7)
  1. CRESTOR [Suspect]
     Active Substance: ROSUVASTATIN CALCIUM
     Indication: CARDIAC FAILURE ACUTE
     Route: 048
     Dates: start: 20200101, end: 20200612
  2. CRESTOR [Suspect]
     Active Substance: ROSUVASTATIN CALCIUM
     Indication: CHOLELITHIASIS
     Route: 048
     Dates: start: 20200101, end: 20200612
  3. CRESTOR [Suspect]
     Active Substance: ROSUVASTATIN CALCIUM
     Indication: TYPE 2 DIABETES MELLITUS
     Route: 048
     Dates: start: 20200101, end: 20200612
  4. CRESTOR [Suspect]
     Active Substance: ROSUVASTATIN CALCIUM
     Indication: LIVER INJURY
     Route: 048
     Dates: start: 20200101, end: 20200612
  5. CRESTOR [Suspect]
     Active Substance: ROSUVASTATIN CALCIUM
     Indication: CARDIAC DISORDER
     Route: 048
     Dates: start: 20200101, end: 20200612
  6. CRESTOR [Suspect]
     Active Substance: ROSUVASTATIN CALCIUM
     Indication: HYPERTENSION
     Route: 048
     Dates: start: 20200101, end: 20200612
  7. CRESTOR [Suspect]
     Active Substance: ROSUVASTATIN CALCIUM
     Indication: ACUTE MYOCARDIAL INFARCTION
     Route: 048
     Dates: start: 20200101, end: 20200612

REACTIONS (2)
  - Hepatic function abnormal [Recovered/Resolved]
  - Drug-induced liver injury [Recovered/Resolved]

NARRATIVE: CASE EVENT DATE: 20200609
